FAERS Safety Report 7154163-8 (Version None)
Quarter: 2010Q4

REPORT INFORMATION
  Report Type: 
  Country: None (occurrence: None)
  Receive Date: 20101213
  Receipt Date: 20101209
  Transmission Date: 20110411
  Serious: Yes (Other)
  Sender: FDA-Public Use
  Company Number: JP-PFIZER INC-2010167518

PATIENT
  Age: 38 Year
  Sex: Male

DRUGS (1)
  1. HALCION [Suspect]
     Dosage: 0.25 MG, 1X/DAY

REACTIONS (1)
  - DIPLOPIA [None]
